FAERS Safety Report 9562747 (Version 4)
Quarter: 2015Q1

REPORT INFORMATION
  Report Type: Spontaneous
  Country: IT (occurrence: IT)
  Receive Date: 20130927
  Receipt Date: 20140415
  Transmission Date: 20150721
  Serious: Yes (Hospitalization)
  Sender: FDA-Public Use
  Company Number: IT-ACTAVIS-2013-16951

PATIENT

DRUGS (3)
  1. CITALOPRAM [Suspect]
     Active Substance: CITALOPRAM HYDROBROMIDE
     Indication: DEPRESSION
     Dosage: 560 MG, SINGLE
     Route: 048
     Dates: start: 20130623, end: 20130623
  2. QUETIAPINE [Suspect]
     Active Substance: QUETIAPINE
     Indication: DEPRESSION
     Dosage: 4000 MG, SINGLE
     Route: 048
     Dates: start: 20130623, end: 20130623
  3. DIAZEPAM. [Suspect]
     Active Substance: DIAZEPAM
     Indication: DEPRESSION
     Dosage: 20 ML, SINGLE
     Route: 048
     Dates: start: 20130623, end: 20130623

REACTIONS (4)
  - Sopor [Recovering/Resolving]
  - Drug abuse [Recovered/Resolved]
  - Suicide attempt [Recovering/Resolving]
  - Loss of consciousness [Recovering/Resolving]

NARRATIVE: CASE EVENT DATE: 20130623
